FAERS Safety Report 7611481-4 (Version None)
Quarter: 2011Q3

REPORT INFORMATION
  Report Type: 
  Country: None (occurrence: None)
  Receive Date: 20110715
  Receipt Date: 20110704
  Transmission Date: 20111222
  Serious: Yes (Other)
  Sender: FDA-Public Use
  Company Number: JP-SANOFI-AVENTIS-2010SA032178

PATIENT
  Age: 75 Year
  Sex: Female

DRUGS (19)
  1. XELODA [Suspect]
     Route: 048
     Dates: end: 20100423
  2. AVASTIN [Suspect]
     Route: 041
     Dates: start: 20100409, end: 20100409
  3. AVASTIN [Suspect]
     Route: 041
     Dates: end: 20100201
  4. PURSENNID /SCH/ [Concomitant]
     Dates: start: 20091109
  5. XELODA [Suspect]
     Route: 048
     Dates: start: 20100101
  6. RABEPRAZOLE SODIUM [Concomitant]
     Dates: start: 20091030
  7. MAGNESIUM SULFATE [Concomitant]
  8. OXALIPLATIN [Suspect]
     Indication: COLON CANCER
     Route: 041
     Dates: start: 20091112, end: 20091112
  9. OXALIPLATIN [Suspect]
     Route: 041
     Dates: start: 20100101
  10. DEXAMETHASONE SODIUM PHOSPHATE [Concomitant]
     Dates: start: 20091112
  11. XELODA [Suspect]
     Indication: COLON CANCER
     Route: 048
     Dates: start: 20091112, end: 20091112
  12. AVASTIN [Suspect]
     Indication: COLON CANCER
     Dosage: DOSE: 7.5 MG/KG (300 MG)
     Route: 041
     Dates: start: 20091204, end: 20091204
  13. RAMELTEON [Concomitant]
     Dates: start: 20091112
  14. OXALIPLATIN [Suspect]
     Route: 041
     Dates: start: 20100219, end: 20100219
  15. XELODA [Suspect]
     Route: 048
  16. CYANOCOBALAMIN/PYRIDOXINE HYDROCHLORIDE/THIAMINE DISULFIDE [Concomitant]
     Dates: start: 20091112, end: 20100423
  17. FOIPAN [Concomitant]
     Dates: start: 20091208
  18. XELODA [Suspect]
     Route: 048
     Dates: start: 20100201, end: 20100201
  19. OXALIPLATIN [Suspect]
     Route: 041

REACTIONS (6)
  - KERATITIS [None]
  - DECREASED APPETITE [None]
  - NAUSEA [None]
  - PANCREATIC ENZYMES INCREASED [None]
  - MALAISE [None]
  - PALMAR-PLANTAR ERYTHRODYSAESTHESIA SYNDROME [None]
